FAERS Safety Report 5520811-9 (Version None)
Quarter: 2007Q4

REPORT INFORMATION
  Report Type: 
  Country: None (occurrence: None)
  Receive Date: 20071119
  Receipt Date: 20071116
  Transmission Date: 20080405
  Serious: Yes (Other)
  Sender: FDA-Public Use
  Company Number: A0686638A

PATIENT
  Age: 40 Year
  Sex: Female
  Weight: 88.6 kg

DRUGS (1)
  1. ALLI [Suspect]
     Dates: start: 20071007

REACTIONS (2)
  - ANAL HAEMORRHAGE [None]
  - HEADACHE [None]
